FAERS Safety Report 7072453-4 (Version None)
Quarter: 2010Q4

REPORT INFORMATION
  Report Type: 
  Country: None (occurrence: None)
  Receive Date: 20101029
  Receipt Date: 20100129
  Transmission Date: 20110411
  Serious: No
  Sender: FDA-Public Use
  Company Number: A0842122A

PATIENT
  Age: 91 Year
  Sex: Male

DRUGS (8)
  1. ADVAIR DISKUS 100/50 [Suspect]
     Indication: BRONCHITIS
     Route: 055
     Dates: start: 20070101
  2. CELEBREX [Concomitant]
  3. FUROSEMIDE [Concomitant]
  4. FLOMAX [Concomitant]
  5. WARFARIN SODIUM [Concomitant]
  6. PRILOSEC [Concomitant]
  7. DOXYCYCLINE [Concomitant]
  8. CEFUROXIME [Concomitant]

REACTIONS (2)
  - MUSCULOSKELETAL CHEST PAIN [None]
  - RIB FRACTURE [None]
